FAERS Safety Report 8345164-2 (Version None)
Quarter: 2012Q2

REPORT INFORMATION
  Report Type: 
  Country: None (occurrence: None)
  Receive Date: 20120508
  Receipt Date: 20120508
  Transmission Date: 20120825
  Serious: Yes (Hospitalization)
  Sender: FDA-Public Use
  Company Number: PHHO2011US019420

PATIENT
  Sex: Female
  Weight: 56.599 kg

DRUGS (3)
  1. BEZ235 [Suspect]
     Indication: NEOPLASM MALIGNANT
     Dosage: 1200 MG, QD
     Dates: start: 20110525, end: 20111115
  2. CLONIDINE HYDROCHLORIDE [Suspect]
     Indication: HYPERTENSION
     Dosage: UNK
  3. NORVASC [Suspect]

REACTIONS (1)
  - UROSEPSIS [None]
